FAERS Safety Report 4536148-0 (Version None)
Quarter: 2004Q4

REPORT INFORMATION
  Report Type: 
  Country: None (occurrence: None)
  Receive Date: 20041220
  Receipt Date: 20041207
  Transmission Date: 20050328
  Serious: Yes (Death)
  Sender: FDA-Public Use
  Company Number: 2004106702

PATIENT
  Age: 35 Year
  Sex: Male

DRUGS (2)
  1. NEURONTIN [Suspect]
     Indication: MUSCLE SPASMS
  2. NEURONTIN [Suspect]
     Indication: PAIN

REACTIONS (2)
  - COMPLETED SUICIDE [None]
  - DRUG INEFFECTIVE [None]
